FAERS Safety Report 8864906 (Version 1)
Quarter: 2012Q4

REPORT INFORMATION
  Report Type: 
  Country: US (occurrence: US)
  Receive Date: 20121024
  Receipt Date: 20121024
  Transmission Date: 20130627
  Serious: No
  Sender: FDA-Public Use
  Company Number: US-AMGEN-USASP2012000138

PATIENT
  Age: 62 Year
  Sex: Female
  Weight: 99.77 kg

DRUGS (7)
  1. ENBREL [Suspect]
     Indication: PRODUCT USED FOR UNKNOWN INDICATION
     Dosage: 50 mg, qwk
  2. LISINOPRIL [Concomitant]
     Dosage: 10 mg, UNK
  3. FISH OIL [Concomitant]
  4. BISOPROLOL W/HYDROCHLOROTHIAZIDE   /01166101/ [Concomitant]
     Dosage: UNK
  5. ASPIRIN [Concomitant]
     Dosage: 81 mg, UNK
  6. HYDROCHLOROTHIAZIDE W/TRIAMTERENE [Concomitant]
     Dosage: 25 mg, UNK
  7. VICODIN [Concomitant]
     Dosage: 500 mg, UNK

REACTIONS (2)
  - Sinus disorder [Unknown]
  - Cough [Unknown]
